FAERS Safety Report 5810977-5 (Version None)
Quarter: 2008Q3

REPORT INFORMATION
  Report Type: 
  Country: None (occurrence: None)
  Receive Date: 20080710
  Receipt Date: 20080703
  Transmission Date: 20090109
  Serious: Yes (Other)
  Sender: FDA-Public Use
  Company Number: 2008SP011815

PATIENT
  Age: 49 Year
  Sex: Male
  Weight: 76.7033 kg

DRUGS (6)
  1. PEG-INTRON (PEGINTERFERON ALFA-2B) [Suspect]
     Indication: HEPATITIS C
     Dosage: 180 MCG; QW; SC; 90 MCG; QW; SC
     Route: 058
     Dates: start: 20071207
  2. PEG-INTRON (PEGINTERFERON ALFA-2B) [Suspect]
     Indication: LYMPHOMA
     Dosage: 180 MCG; QW; SC; 90 MCG; QW; SC
     Route: 058
     Dates: start: 20071207
  3. PEG-INTRON (PEGINTERFERON ALFA-2B) [Suspect]
     Indication: HEPATITIS C
     Dosage: 180 MCG; QW; SC; 90 MCG; QW; SC
     Route: 058
     Dates: start: 20071220
  4. PEG-INTRON (PEGINTERFERON ALFA-2B) [Suspect]
     Indication: LYMPHOMA
     Dosage: 180 MCG; QW; SC; 90 MCG; QW; SC
     Route: 058
     Dates: start: 20071220
  5. COPEGUS [Suspect]
     Indication: HEPATITIS C
  6. COPEGUS [Suspect]
     Indication: LYMPHOMA

REACTIONS (5)
  - ASTHENIA [None]
  - FULL BLOOD COUNT DECREASED [None]
  - LEUKOPENIA [None]
  - NEUTROPENIA [None]
  - NON-HODGKIN'S LYMPHOMA RECURRENT [None]
